FAERS Safety Report 9735945 (Version 1)
Quarter: 2013Q4

REPORT INFORMATION
  Report Type: Spontaneous
  Country: US (occurrence: None)
  Receive Date: 20131205
  Receipt Date: 20131205
  Transmission Date: 20140711
  Serious: Yes (Hospitalization)
  Sender: FDA-Public Use
  Company Number: None

PATIENT
  Age: 73 Year
  Sex: Female
  Weight: 49.9 kg

DRUGS (9)
  1. LINEZOLID [Suspect]
     Indication: BRAIN ABSCESS
     Route: 048
     Dates: start: 20131003, end: 20131123
  2. IMIPENEM/CILASTATIN [Concomitant]
  3. DEXAMETHASONE [Concomitant]
  4. PANTOPRAZOLE [Concomitant]
  5. LEVOTHYROXINE [Concomitant]
  6. ARTIFICIAL TEARS 1.4% [Concomitant]
  7. APAP [Concomitant]
  8. HYDROCODONE-APAP 5/325 [Concomitant]
  9. ONDANSETRON [Concomitant]

REACTIONS (1)
  - Pancytopenia [None]
